FAERS Safety Report 7636939-3 (Version None)
Quarter: 2011Q3

REPORT INFORMATION
  Report Type: 
  Country: None (occurrence: None)
  Receive Date: 20110722
  Receipt Date: 20110722
  Transmission Date: 20111222
  Serious: No
  Sender: FDA-Public Use
  Company Number: None

PATIENT
  Sex: Male

DRUGS (1)
  1. LORAZEPAM [Suspect]
     Indication: INSOMNIA
     Dosage: 1-2 TABS HS ORAL
     Route: 048
     Dates: start: 20110701, end: 20110708

REACTIONS (3)
  - PRODUCT QUALITY ISSUE [None]
  - INITIAL INSOMNIA [None]
  - DRUG INEFFECTIVE [None]
